FAERS Safety Report 18572363 (Version 1)
Quarter: 2020Q4

REPORT INFORMATION
  Report Type: Spontaneous
  Country: PL (occurrence: PL)
  Receive Date: 20201202
  Receipt Date: 20201202
  Transmission Date: 20210114
  Serious: Yes (Hospitalization)
  Sender: FDA-Public Use
  Company Number: PL-ALLERGAN-2046434US

PATIENT
  Sex: Male

DRUGS (11)
  1. SOMATOSTATIN [Suspect]
     Active Substance: SOMATOSTATIN
     Dosage: 3 MG, QD
     Route: 065
  2. HEPARIN [Suspect]
     Active Substance: HEPARIN SODIUM
     Indication: PRODUCT USED FOR UNKNOWN INDICATION
     Route: 065
  3. CEFTRIAXONE. [Suspect]
     Active Substance: CEFTRIAXONE
     Indication: PRODUCT USED FOR UNKNOWN INDICATION
     Route: 065
  4. METRONIDAZOLE. [Suspect]
     Active Substance: METRONIDAZOLE
     Indication: PRODUCT USED FOR UNKNOWN INDICATION
     Route: 042
  5. SOMATOSTATIN [Suspect]
     Active Substance: SOMATOSTATIN
     Dosage: 6 MG, QD
     Route: 065
  6. DEX UNK (DEXAMETHASONE) [Suspect]
     Active Substance: DEXAMETHASONE
     Indication: PRODUCT USED FOR UNKNOWN INDICATION
     Route: 065
  7. SOMATOSTATIN [Suspect]
     Active Substance: SOMATOSTATIN
     Indication: PRODUCT USED FOR UNKNOWN INDICATION
  8. ICHTHYOL [Suspect]
     Active Substance: ICHTHAMMOL
     Indication: PRODUCT USED FOR UNKNOWN INDICATION
     Route: 065
  9. ANESTHESIN [Suspect]
     Active Substance: BENZOCAINE
     Indication: PRODUCT USED FOR UNKNOWN INDICATION
     Route: 065
  10. MEROPENEM. [Suspect]
     Active Substance: MEROPENEM
     Indication: PRODUCT USED FOR UNKNOWN INDICATION
     Route: 065
  11. METHYLPREDNISOLONE. [Suspect]
     Active Substance: METHYLPREDNISOLONE
     Indication: PRODUCT USED FOR UNKNOWN INDICATION
     Route: 048

REACTIONS (11)
  - Peripheral swelling [Unknown]
  - Drug ineffective [Unknown]
  - Normocytic anaemia [Unknown]
  - Panniculitis [Unknown]
  - Decubitus ulcer [Not Recovered/Not Resolved]
  - Pancreatitis [Unknown]
  - Mouth ulceration [Unknown]
  - Necrosis [Unknown]
  - Pancreatic neoplasm [Unknown]
  - Pyrexia [Unknown]
  - Polyarthritis [Unknown]
